FAERS Safety Report 8915142 (Version 1)
Quarter: 2012Q4

REPORT INFORMATION
  Report Type: 
  Country: US (occurrence: US)
  Receive Date: 20121118
  Receipt Date: 20121118
  Transmission Date: 20130627
  Serious: Yes (Hospitalization)
  Sender: FDA-Public Use
  Company Number: US-ELI_LILLY_AND_COMPANY-US201206000342

PATIENT
  Age: 78 None
  Sex: Female

DRUGS (3)
  1. FORTEO [Suspect]
     Indication: OSTEOPOROSIS
     Dosage: 20 ug, qd
     Dates: start: 20120526
  2. FORTEO [Suspect]
     Dosage: 20 ug, qd
  3. FORTEO [Suspect]
     Dosage: UNK

REACTIONS (8)
  - Hip fracture [Unknown]
  - Limb injury [Unknown]
  - Fall [Unknown]
  - Upper limb fracture [Unknown]
  - Headache [Recovered/Resolved]
  - Upper limb fracture [Unknown]
  - Fall [Unknown]
  - Muscular weakness [Unknown]
